FAERS Safety Report 25906619 (Version 1)
Quarter: 2025Q4

REPORT INFORMATION
  Report Type: Spontaneous
  Country: JP (occurrence: JP)
  Receive Date: 20251010
  Receipt Date: 20251010
  Transmission Date: 20260117
  Serious: Yes (Hospitalization)
  Sender: EISAI
  Company Number: JP-Eisai-202508342_DVG_P_1

PATIENT

DRUGS (1)
  1. DAYVIGO [Suspect]
     Active Substance: LEMBOREXANT
     Indication: Product used for unknown indication
     Dosage: FREQUENCY UNKNOWN
     Route: 048

REACTIONS (2)
  - Hypersomnia [Recovering/Resolving]
  - Overdose [Recovering/Resolving]
